FAERS Safety Report 8018918-X (Version None)
Quarter: 2011Q4

REPORT INFORMATION
  Report Type: 
  Country: None (occurrence: None)
  Receive Date: 20111227
  Receipt Date: 20111208
  Transmission Date: 20120403
  Serious: Yes (Life-Threatening, Other)
  Sender: FDA-Public Use
  Company Number: 20110850

PATIENT
  Sex: Female

DRUGS (1)
  1. METHYLERGONOVINE MALEATE INJECTION, USP [Suspect]
     Dosage: BIRTH GIVEN 10 MIN. AFTER INTRAMUSCULAR
     Route: 030

REACTIONS (4)
  - LIVEDO RETICULARIS [None]
  - CYANOSIS [None]
  - HYPOPNOEA [None]
  - WRONG DRUG ADMINISTERED [None]
